FAERS Safety Report 14966964 (Version 10)
Quarter: 2024Q1

REPORT INFORMATION
  Report Type: Spontaneous
  Country: PL (occurrence: PL)
  Receive Date: 20180604
  Receipt Date: 20240208
  Transmission Date: 20240410
  Serious: Yes (Life-Threatening, Disabling, Other)
  Sender: FDA-Public Use
  Company Number: PL-AUROBINDO-AUR-APL-2018-029194

PATIENT
  Age: 62 Year
  Sex: Male
  Weight: 137 kg

DRUGS (12)
  1. SERTRALINE [Interacting]
     Active Substance: SERTRALINE HYDROCHLORIDE
     Indication: Post stroke depression
     Dosage: UNK
     Route: 048
  2. SERTRALINE [Interacting]
     Active Substance: SERTRALINE HYDROCHLORIDE
     Indication: Insomnia
  3. ZOLPIDEM [Interacting]
     Active Substance: ZOLPIDEM TARTRATE
     Indication: Post stroke depression
     Dosage: UNK
     Route: 048
  4. ZOLPIDEM [Interacting]
     Active Substance: ZOLPIDEM TARTRATE
     Indication: Insomnia
  5. GINKGO [Suspect]
     Active Substance: GINKGO
     Indication: Ischaemic stroke
     Dosage: UNK
     Route: 065
  6. GINKGO [Suspect]
     Active Substance: GINKGO
     Indication: Cerebrovascular accident
  7. ZOLPIDEM TARTRATE [Interacting]
     Active Substance: ZOLPIDEM TARTRATE
     Indication: Insomnia
     Dosage: UNK
     Route: 048
  8. GINKGO [Interacting]
     Active Substance: GINKGO
     Indication: Cerebrovascular accident
     Dosage: UNK
     Route: 065
  9. WARFARIN [Interacting]
     Active Substance: WARFARIN
     Indication: Ischaemic stroke
     Dosage: UNK
     Route: 048
  10. WARFARIN [Interacting]
     Active Substance: WARFARIN
     Indication: Cerebrovascular accident
  11. SOTALOL [Concomitant]
     Active Substance: SOTALOL
     Indication: Ischaemic stroke
     Dosage: UNK
     Route: 065
  12. SOTALOL [Concomitant]
     Active Substance: SOTALOL
     Indication: Cerebrovascular accident

REACTIONS (5)
  - Apallic syndrome [Not Recovered/Not Resolved]
  - Ischaemic stroke [Not Recovered/Not Resolved]
  - Ischaemic cerebral infarction [Not Recovered/Not Resolved]
  - Drug interaction [Unknown]
  - Potentiating drug interaction [Unknown]
